FAERS Safety Report 6895573-3 (Version None)
Quarter: 2010Q3

REPORT INFORMATION
  Report Type: 
  Country: None (occurrence: None)
  Receive Date: 20100802
  Receipt Date: 20100728
  Transmission Date: 20110219
  Serious: Yes (Death, Hospitalization, Other)
  Sender: FDA-Public Use
  Company Number: PHHY2010ES49060

PATIENT
  Age: 84 Year
  Sex: Female

DRUGS (6)
  1. SINTROM [Interacting]
     Indication: ATRIAL FIBRILLATION
     Dosage: UNK
     Route: 048
     Dates: start: 20100318, end: 20100518
  2. EXELON [Suspect]
     Indication: DEMENTIA ALZHEIMER'S TYPE
     Dosage: 9.5 MG DAILY
     Route: 062
     Dates: end: 20100518
  3. EMCONCOR [Interacting]
     Indication: ATRIAL FIBRILLATION
     Dosage: 2.5 MG
     Route: 048
     Dates: start: 20100318, end: 20100518
  4. ENOXAPARIN SODIUM [Interacting]
     Dosage: 240 MG DAILY
     Route: 058
     Dates: start: 20100101, end: 20100518
  5. SERTRALINE HYDROCHLORIDE [Interacting]
     Dosage: 50 MG DAILY
     Route: 048
     Dates: end: 20100518
  6. MEMANTINE HCL [Interacting]
     Indication: DEMENTIA ALZHEIMER'S TYPE
     Dosage: 20 MG
     Route: 048
     Dates: end: 20100518

REACTIONS (6)
  - ABDOMINAL PAIN [None]
  - DRUG INTERACTION [None]
  - INTRA-ABDOMINAL HAEMORRHAGE [None]
  - RENAL FAILURE ACUTE [None]
  - RESPIRATORY FAILURE [None]
  - RETROPERITONEAL HAEMATOMA [None]
